FAERS Safety Report 11012367 (Version 1)
Quarter: 2015Q2

REPORT INFORMATION
  Report Type: Spontaneous
  Country: US (occurrence: None)
  Receive Date: 20150410
  Receipt Date: 20150410
  Transmission Date: 20150821
  Serious: Yes (Hospitalization)
  Sender: FDA-Public Use
  Company Number: None

PATIENT
  Age: 74 Year
  Sex: Male
  Weight: 65.1 kg

DRUGS (1)
  1. BENDAMUSTINE HYDROCHLORIDE [Suspect]
     Active Substance: BENDAMUSTINE HYDROCHLORIDE
     Dates: end: 20150327

REACTIONS (8)
  - Cough [None]
  - Chills [None]
  - Pollakiuria [None]
  - Pancytopenia [None]
  - Liver function test abnormal [None]
  - Constipation [None]
  - Pyrexia [None]
  - Suprapubic pain [None]

NARRATIVE: CASE EVENT DATE: 20150405
